FAERS Safety Report 7954129-1 (Version None)
Quarter: 2011Q4

REPORT INFORMATION
  Report Type: 
  Country: None (occurrence: None)
  Receive Date: 20111202
  Receipt Date: 20111122
  Transmission Date: 20120403
  Serious: Yes (Hospitalization)
  Sender: FDA-Public Use
  Company Number: US-BAYER-2011-082107

PATIENT
  Age: 51 Year
  Sex: Female
  Weight: 47.619 kg

DRUGS (1)
  1. YASMIN [Suspect]
     Indication: CONTRACEPTION
     Dosage: UNK
     Dates: start: 20020101, end: 20040628

REACTIONS (7)
  - CORONARY ARTERY THROMBOSIS [None]
  - ANXIETY [None]
  - PSYCHOLOGICAL TRAUMA [None]
  - FEAR [None]
  - INJURY [None]
  - PAIN [None]
  - ANHEDONIA [None]
